FAERS Safety Report 9561167 (Version 2)
Quarter: 2013Q4

REPORT INFORMATION
  Report Type: Spontaneous
  Country: US (occurrence: US)
  Receive Date: 20130927
  Receipt Date: 20131031
  Transmission Date: 20140711
  Serious: Yes (Hospitalization, Other)
  Sender: FDA-Public Use
  Company Number: US-UCBSA-098000

PATIENT
  Age: 52 Year
  Sex: Male

DRUGS (5)
  1. CIMZIA [Suspect]
     Dosage: INDUCTION DOSE
     Dates: start: 2012, end: 2012
  2. CIMZIA [Suspect]
     Dates: start: 2012, end: 201302
  3. PREDNISONE [Concomitant]
  4. CLONOPINE [Concomitant]
     Indication: STRESS
  5. PAXIL [Concomitant]
     Indication: DEPRESSION

REACTIONS (6)
  - Crohn^s disease [Recovered/Resolved]
  - Psoriasis [Recovering/Resolving]
  - Anaemia [Unknown]
  - Intestinal stenosis [Recovered/Resolved]
  - Fatigue [Not Recovered/Not Resolved]
  - Arthralgia [Not Recovered/Not Resolved]
